FAERS Safety Report 6067367-2 (Version None)
Quarter: 2009Q1

REPORT INFORMATION
  Report Type: 
  Country: None (occurrence: None)
  Receive Date: 20090204
  Receipt Date: 20090204
  Transmission Date: 20090719
  Serious: No
  Sender: FDA-Public Use
  Company Number: None

PATIENT
  Sex: Female
  Weight: 117.028 kg

DRUGS (1)
  1. LEVOTHYROXINE SODIUM [Suspect]
     Dosage: 75 MCG ONCE DAILY ORAL
     Route: 048

REACTIONS (1)
  - HEADACHE [None]
